FAERS Safety Report 4753945-7 (Version None)
Quarter: 2005Q3

REPORT INFORMATION
  Report Type: 
  Country: None (occurrence: None)
  Receive Date: 20050826
  Receipt Date: 20050805
  Transmission Date: 20060218
  Serious: Yes (Other)
  Sender: FDA-Public Use
  Company Number: US-ABBOTT-05P-163-0307651-00

PATIENT
  Sex: Female

DRUGS (1)
  1. TARKA [Suspect]
     Indication: BLOOD PRESSURE INCREASED
     Route: 048
     Dates: start: 20041213, end: 20050725

REACTIONS (6)
  - BLOOD PRESSURE INCREASED [None]
  - DYSPNOEA [None]
  - EYE SWELLING [None]
  - HEART RATE INCREASED [None]
  - OEDEMA MOUTH [None]
  - SWELLING FACE [None]
